FAERS Safety Report 7698910-5 (Version None)
Quarter: 2011Q3

REPORT INFORMATION
  Report Type: 
  Country: None (occurrence: None)
  Receive Date: 20110819
  Receipt Date: 20110810
  Transmission Date: 20111222
  Serious: Yes (Other)
  Sender: FDA-Public Use
  Company Number: FR-B.I. PHARMACEUTICALS,INC./RIDGEFIELD-2011-BP-16097YA

PATIENT
  Sex: Male

DRUGS (3)
  1. FLUOROQUINOLONES [Suspect]
     Route: 065
  2. TAMSULOSIN HCL [Suspect]
     Indication: PROSTATISM
     Route: 065
  3. PROPRANOLOL [Concomitant]

REACTIONS (1)
  - MIGRAINE [None]
